FAERS Safety Report 9457278 (Version 3)
Quarter: 2013Q3

REPORT INFORMATION
  Report Type: Report from Study
  Country: CA (occurrence: CA)
  Receive Date: 20130814
  Receipt Date: 20130827
  Transmission Date: 20140515
  Serious: Yes (Other)
  Sender: FDA-Public Use
  Company Number: CA-ROCHE-1232470

PATIENT
  Age: 61 Year
  Sex: Male
  Weight: 66 kg

DRUGS (8)
  1. AVASTIN [Suspect]
     Indication: LUNG NEOPLASM MALIGNANT
     Route: 042
     Dates: start: 20130515, end: 20130807
  2. TELMISARTAN [Concomitant]
     Indication: BLOOD PRESSURE
  3. VITAMIN B12 [Concomitant]
  4. DEXAMETHASONE [Concomitant]
  5. EMTEC-30 [Concomitant]
     Indication: COUGH
  6. EMTEC-30 [Concomitant]
     Indication: PAIN
  7. TYLENOL [Concomitant]
  8. PEMETREXED [Concomitant]

REACTIONS (12)
  - Disease progression [Not Recovered/Not Resolved]
  - Laryngeal cancer [Unknown]
  - Blood pressure increased [Recovering/Resolving]
  - Flatulence [Not Recovered/Not Resolved]
  - Weight increased [Not Recovered/Not Resolved]
  - Heart rate increased [Unknown]
  - Device breakage [Not Recovered/Not Resolved]
  - Oropharyngeal pain [Recovered/Resolved]
  - Muscle disorder [Not Recovered/Not Resolved]
  - Feeling hot [Not Recovered/Not Resolved]
  - Hypertension [Not Recovered/Not Resolved]
  - Tachycardia [Not Recovered/Not Resolved]
